FAERS Safety Report 8121694-3 (Version None)
Quarter: 2012Q1

REPORT INFORMATION
  Report Type: 
  Country: None (occurrence: None)
  Receive Date: 20120208
  Receipt Date: 20120202
  Transmission Date: 20120608
  Serious: Yes (Other)
  Sender: FDA-Public Use
  Company Number: US-PFIZER INC-2012030691

PATIENT
  Age: 77 Year
  Sex: Male

DRUGS (2)
  1. DEPAKOTE [Concomitant]
  2. SOLU-MEDROL [Suspect]

REACTIONS (1)
  - CARDIAC DISORDER [None]
